FAERS Safety Report 9177124 (Version 2)
Quarter: 2013Q2

REPORT INFORMATION
  Report Type: Spontaneous
  Country: US (occurrence: US)
  Receive Date: 20120531
  Receipt Date: 20130527
  Transmission Date: 20140414
  Serious: Yes (Hospitalization, Other)
  Sender: FDA-Public Use
  Company Number: US201110004545

PATIENT
  Age: 46 Year
  Sex: Male
  Weight: 109.75 kg

DRUGS (30)
  1. BYETTA PEN DISPOSABLE [Suspect]
     Indication: PRODUCT USED FOR UNKNOWN INDICATION
     Dates: start: 200708
  2. VICODIN [Concomitant]
     Indication: PAIN
     Dates: start: 201102
  3. METFORMIN [Concomitant]
  4. LISINOPRIL [Concomitant]
  5. TRAMADOL [Concomitant]
  6. GEMFIBROZIL [Concomitant]
  7. INSULIN [Concomitant]
     Dosage: 1DF = 30 UNITS AM, 45UNITS QHS
  8. CARDIZEM [Concomitant]
  9. CARVEDILOL [Concomitant]
  10. SERTRALINE [Concomitant]
  11. FENOFIBRATE [Concomitant]
  12. LYRICA [Concomitant]
  13. REQUIP [Concomitant]
  14. RANITIDINE [Concomitant]
  15. MAGNESIUM OXIDE [Concomitant]
  16. HYDROCODONE [Concomitant]
     Dosage: 1DF= 7.5/500 1-2 TABS QID,PRN
  17. AMBIEN [Concomitant]
  18. PLAVIX [Concomitant]
  19. ISOSORBIDE [Concomitant]
  20. ULTRAM [Concomitant]
  21. CARTIA XT [Concomitant]
  22. NEURONTIN [Concomitant]
  23. GLYBURIDE [Concomitant]
  24. PREVACID [Concomitant]
  25. TRAZODONE HCL [Concomitant]
  26. METOPROLOL [Concomitant]
  27. SPIRIVA [Concomitant]
     Dosage: ONE CAP INHALER
  28. SIMVASTATIN [Concomitant]
  29. AMITRIPTYLINE [Concomitant]
  30. ALBUTEROL [Concomitant]
     Route: 048

REACTIONS (5)
  - Cholelithiasis [Recovered/Resolved]
  - Pancreatitis [Unknown]
  - Pancreatitis relapsing [Unknown]
  - Diarrhoea [Unknown]
  - Gastric polyps [Unknown]
